FAERS Safety Report 4757047-5 (Version None)
Quarter: 2005Q3

REPORT INFORMATION
  Report Type: 
  Country: None (occurrence: None)
  Receive Date: 20050831
  Receipt Date: 20050823
  Transmission Date: 20060218
  Serious: Yes (Hospitalization)
  Sender: FDA-Public Use
  Company Number: AU-BOEHRINGER INGELHEIM PHARMACEUTICALS, INC.-2005-BP-14651AU

PATIENT
  Sex: Female

DRUGS (4)
  1. MOBIC [Suspect]
     Route: 048
     Dates: end: 20050110
  2. CARTIA XT [Suspect]
     Route: 048
  3. GOPTEN (TRANDOLAPRIL) [Concomitant]
     Route: 048
  4. LIPEX [Concomitant]
     Route: 048

REACTIONS (4)
  - FALL [None]
  - MELAENA [None]
  - MYOCARDIAL INFARCTION [None]
  - SYNCOPE [None]
